FAERS Safety Report 6413934-3 (Version None)
Quarter: 2009Q4

REPORT INFORMATION
  Report Type: 
  Country: None (occurrence: None)
  Receive Date: 20091026
  Receipt Date: 20091015
  Transmission Date: 20100525
  Serious: Yes (Death)
  Sender: FDA-Public Use
  Company Number: US-ELI_LILLY_AND_COMPANY-US200910003708

PATIENT
  Sex: Male

DRUGS (2)
  1. FORTEO [Suspect]
  2. ZYPREXA [Concomitant]

REACTIONS (1)
  - DEATH [None]
